FAERS Safety Report 23368307 (Version 1)
Quarter: 2024Q1

REPORT INFORMATION
  Report Type: Spontaneous
  Country: CN (occurrence: CN)
  Receive Date: 20240105
  Receipt Date: 20240105
  Transmission Date: 20240410
  Serious: Yes (Hospitalization, Other)
  Sender: FDA-Public Use
  Company Number: CN-BEIGENE-BGN-2023-015685

PATIENT
  Age: 73 Year
  Sex: Male
  Weight: 55 kg

DRUGS (9)
  1. TISLELIZUMAB [Suspect]
     Active Substance: TISLELIZUMAB
     Dosage: 200 MG
     Route: 041
     Dates: start: 20231208
  2. TISLELIZUMAB [Suspect]
     Active Substance: TISLELIZUMAB
     Indication: Lung squamous cell carcinoma recurrent
     Dosage: UNK
     Route: 041
     Dates: start: 20231025
  3. TISLELIZUMAB [Suspect]
     Active Substance: TISLELIZUMAB
     Dosage: UNK
     Route: 041
     Dates: start: 20231116
  4. CARBOPLATIN [Suspect]
     Active Substance: CARBOPLATIN
     Dosage: 350 MG
     Route: 041
     Dates: start: 20231206
  5. CARBOPLATIN [Suspect]
     Active Substance: CARBOPLATIN
     Indication: Lung squamous cell carcinoma recurrent
     Dosage: UNK
     Route: 065
     Dates: start: 20231023
  6. CARBOPLATIN [Suspect]
     Active Substance: CARBOPLATIN
     Dosage: UNK
     Route: 065
     Dates: start: 20231114
  7. PACLITAXEL [Suspect]
     Active Substance: PACLITAXEL
     Dosage: 400 MG
     Route: 041
     Dates: start: 20231206
  8. PACLITAXEL [Suspect]
     Active Substance: PACLITAXEL
     Indication: Lung squamous cell carcinoma recurrent
     Dosage: UNK
     Route: 065
     Dates: start: 20231023
  9. PACLITAXEL [Suspect]
     Active Substance: PACLITAXEL
     Dosage: UNK
     Route: 065
     Dates: start: 20231114

REACTIONS (10)
  - Myelosuppression [Recovering/Resolving]
  - Pyrexia [Unknown]
  - Cough [Unknown]
  - Productive cough [Unknown]
  - Temperature intolerance [Unknown]
  - Tachypnoea [Unknown]
  - Hypoaesthesia [Unknown]
  - Myalgia [Unknown]
  - Oral pain [Unknown]
  - Decreased appetite [Unknown]

NARRATIVE: CASE EVENT DATE: 20231209
